FAERS Safety Report 24682754 (Version 1)
Quarter: 2024Q4

REPORT INFORMATION
  Report Type: Report from Study
  Country: US (occurrence: US)
  Receive Date: 20241201
  Receipt Date: 20241201
  Transmission Date: 20250115
  Serious: Yes (Other)
  Sender: AUROBINDO
  Company Number: US-AUROBINDO-AUR-APL-2024-057456

PATIENT

DRUGS (2)
  1. ADENOSINE [Suspect]
     Active Substance: ADENOSINE
     Indication: Supraventricular tachycardia
     Dosage: UNK
     Route: 065
  2. ADENOSINE [Suspect]
     Active Substance: ADENOSINE
     Indication: Junctional ectopic tachycardia

REACTIONS (1)
  - Drug ineffective [Unknown]
